FAERS Safety Report 14568504 (Version 10)
Quarter: 2018Q2

REPORT INFORMATION
  Report Type: Spontaneous
  Country: FR (occurrence: FR)
  Receive Date: 20180223
  Receipt Date: 20180511
  Transmission Date: 20180711
  Serious: Yes (Death, Hospitalization, Other)
  Sender: FDA-Public Use
  Company Number: FR-SA-2017SA036862

PATIENT
  Age: 71 Year
  Sex: Male
  Weight: 113.4 kg

DRUGS (29)
  1. DIFFU K [Concomitant]
     Active Substance: POTASSIUM CHLORIDE
     Route: 065
  2. DUPHALAC [Concomitant]
     Active Substance: LACTULOSE
     Route: 065
  3. UMULINE [Concomitant]
     Active Substance: INSULIN HUMAN
     Dosage: UMULINE ZINC COMPOSE
     Route: 065
  4. GALACTOSE [Concomitant]
     Active Substance: GALACTOSE
     Route: 065
  5. LACTOSE [Concomitant]
     Active Substance: LACTOSE
     Route: 065
  6. CUBICIN [Suspect]
     Active Substance: DAPTOMYCIN
     Indication: PRODUCT USED FOR UNKNOWN INDICATION
     Route: 042
     Dates: start: 20170110, end: 20170201
  7. LOVENOX [Concomitant]
     Active Substance: ENOXAPARIN SODIUM
     Route: 065
     Dates: start: 20170114
  8. RIFADINE [Suspect]
     Active Substance: RIFAMPIN
     Indication: PRODUCT USED FOR UNKNOWN INDICATION
     Route: 065
  9. PANTOPRAZOLE [Suspect]
     Active Substance: PANTOPRAZOLE
     Indication: PRODUCT USED FOR UNKNOWN INDICATION
     Route: 042
     Dates: end: 20170119
  10. SYMBICORT [Suspect]
     Active Substance: BUDESONIDE\FORMOTEROL FUMARATE DIHYDRATE
     Indication: PRODUCT USED FOR UNKNOWN INDICATION
     Dosage: FORM- POWDER FOR INHALATION
     Route: 055
     Dates: start: 20161220, end: 20170119
  11. RACECADOTRIL [Suspect]
     Active Substance: RACECADOTRIL
     Indication: PRODUCT USED FOR UNKNOWN INDICATION
     Route: 048
     Dates: start: 20161209, end: 20170119
  12. ULTRAVIST [Suspect]
     Active Substance: IOPROMIDE
     Indication: COMPUTERISED TOMOGRAM THORAX
     Route: 042
     Dates: start: 20170116, end: 20170116
  13. FUROSEMIDE. [Concomitant]
     Active Substance: FUROSEMIDE
     Route: 065
  14. PREVISCAN (FLUINDIONE) [Concomitant]
     Active Substance: FLUINDIONE
     Route: 065
  15. PRIMPERAN [Suspect]
     Active Substance: METOCLOPRAMIDE HYDROCHLORIDE
     Indication: PRODUCT USED FOR UNKNOWN INDICATION
     Dosage: FORM-DIVISIBLE TABLET,30 MG, QD (10 MG, TID (3 DF, TID (1 DF TID))
     Route: 048
     Dates: start: 20161224, end: 20170119
  16. QUESTRAN [Suspect]
     Active Substance: CHOLESTYRAMINE
     Indication: PRODUCT USED FOR UNKNOWN INDICATION
     Route: 048
     Dates: start: 20161216, end: 20170119
  17. NEFOPAM [Suspect]
     Active Substance: NEFOPAM
     Indication: PRODUCT USED FOR UNKNOWN INDICATION
     Route: 042
     Dates: start: 20161202, end: 20170119
  18. VANCOMYCINE [Suspect]
     Active Substance: VANCOMYCIN
     Indication: PRODUCT USED FOR UNKNOWN INDICATION
     Route: 065
  19. LINEZOLID. [Suspect]
     Active Substance: LINEZOLID
     Indication: SKIN INFECTION
     Dosage: 1200 MG, QD (600 MG, BID)
     Route: 048
     Dates: start: 20161222, end: 20170110
  20. LANTUS [Concomitant]
     Active Substance: INSULIN GLARGINE
     Route: 065
  21. PANTOPRAZOLE [Suspect]
     Active Substance: PANTOPRAZOLE
     Indication: PRODUCT USED FOR UNKNOWN INDICATION
     Route: 042
     Dates: start: 20161225, end: 20170119
  22. ACETAMINOPHEN/TRAMADOL HYDROCHLORIDE [Suspect]
     Active Substance: ACETAMINOPHEN\TRAMADOL HYDROCHLORIDE
     Indication: PRODUCT USED FOR UNKNOWN INDICATION
     Route: 048
     Dates: start: 20161201, end: 20170119
  23. ULTRAVIST [Suspect]
     Active Substance: IOPROMIDE
     Indication: CHEST SCAN
     Route: 042
     Dates: start: 20170116, end: 20170116
  24. POLARAMINE [Concomitant]
     Active Substance: DEXCHLORPHENIRAMINE MALEATE
     Route: 065
  25. TAZOBACTAM/PIPERACILLIN [Suspect]
     Active Substance: PIPERACILLIN SODIUM\TAZOBACTAM SODIUM
     Indication: SKIN INFECTION
     Dosage: 3 DF, QD (1 DF, 3X/DAY)
     Route: 042
     Dates: start: 20161204, end: 20170130
  26. LOPERAMIDE [Concomitant]
     Active Substance: LOPERAMIDE
     Route: 065
  27. PREVISCAN (FLUINDIONE) [Concomitant]
     Active Substance: FLUINDIONE
     Route: 065
     Dates: start: 20170118, end: 20170119
  28. KARDEGIC [Concomitant]
     Active Substance: ASPIRIN DL-LYSINE
     Route: 065
  29. LACTULOSE. [Concomitant]
     Active Substance: LACTULOSE
     Route: 065

REACTIONS (18)
  - Diffuse alveolar damage [Fatal]
  - Alveolar lung disease [Fatal]
  - Rash maculo-papular [Fatal]
  - Eosinophilic pneumonia [Fatal]
  - Glomerular filtration rate decreased [Fatal]
  - Rectal haemorrhage [Fatal]
  - Acute kidney injury [Fatal]
  - Dyspnoea [Fatal]
  - Sepsis [Fatal]
  - Hyperammonaemia [Fatal]
  - Restlessness [Fatal]
  - Hepatic encephalopathy [Fatal]
  - Death [Fatal]
  - Pulmonary interstitial emphysema syndrome [Fatal]
  - Eczema [Fatal]
  - Thrombocytopenia [Fatal]
  - Generalised oedema [Fatal]
  - Eosinophilia [Fatal]

NARRATIVE: CASE EVENT DATE: 20170130
